FAERS Safety Report 6407106-6 (Version None)
Quarter: 2009Q4

REPORT INFORMATION
  Report Type: 
  Country: None (occurrence: None)
  Receive Date: 20091020
  Receipt Date: 20091020
  Transmission Date: 20100525
  Serious: Yes (Hospitalization)
  Sender: FDA-Public Use
  Company Number: TR-ROXANE LABORATORIES, INC.-2009-DE-06334GD

PATIENT
  Age: 45 Year
  Sex: Male

DRUGS (3)
  1. NAPROXEN [Suspect]
     Dosage: 2200 MG
  2. AMLODIPINE [Suspect]
     Dosage: 20 MG
  3. COLCHICINE [Suspect]
     Dosage: 5 MG

REACTIONS (2)
  - DRUG ABUSE [None]
  - SUICIDE ATTEMPT [None]
